FAERS Safety Report 23062625 (Version 1)
Quarter: 2023Q4

REPORT INFORMATION
  Report Type: Spontaneous
  Country: AU (occurrence: AU)
  Receive Date: 20231013
  Receipt Date: 20231013
  Transmission Date: 20240110
  Serious: Yes (Other)
  Sender: FDA-Public Use
  Company Number: AU-STERISCIENCE B.V.-2023-ST-002029

PATIENT
  Age: 65 Year
  Sex: Female

DRUGS (6)
  1. MYCOPHENOLATE MOFETIL [Suspect]
     Active Substance: MYCOPHENOLATE MOFETIL
     Indication: Hypereosinophilic syndrome
     Dosage: 1 GRAM, BID
     Route: 065
     Dates: start: 2021
  2. PREDNISOLONE [Suspect]
     Active Substance: PREDNISOLONE
     Indication: Eosinophilic pneumonia
     Dosage: 25 MILLIGRAM, QD
     Route: 065
     Dates: start: 2021
  3. PREDNISOLONE [Suspect]
     Active Substance: PREDNISOLONE
     Indication: Hypereosinophilic syndrome
     Dosage: 50 MILLIGRAM, QD
     Route: 065
     Dates: start: 2021
  4. PREDNISOLONE [Suspect]
     Active Substance: PREDNISOLONE
     Dosage: 7.5 MILLIGRAM, QD; DOSE TAPERED
     Route: 065
     Dates: start: 2022
  5. MEPOLIZUMAB [Suspect]
     Active Substance: MEPOLIZUMAB
     Indication: Hypereosinophilic syndrome
     Dosage: 300 MILLIGRAM; 4 WEEK
     Route: 065
     Dates: start: 202201
  6. DOXYCYCLINE [Concomitant]
     Active Substance: DOXYCYCLINE
     Indication: Pneumonia
     Dosage: UNK
     Route: 065
     Dates: start: 2021

REACTIONS (3)
  - Nervous system disorder [None]
  - Nematodiasis [None]
  - Off label use [Unknown]

NARRATIVE: CASE EVENT DATE: 20220101
